FAERS Safety Report 17903090 (Version 1)
Quarter: 2020Q2

REPORT INFORMATION
  Report Type: Spontaneous
  Country: IN (occurrence: IN)
  Receive Date: 20200617
  Receipt Date: 20200617
  Transmission Date: 20200714
  Serious: Yes (Other)
  Sender: FDA-Public Use
  Company Number: IN-SUN PHARMACEUTICAL INDUSTRIES LTD-2020R1-249945

PATIENT
  Age: 56 Year
  Sex: Male

DRUGS (1)
  1. CAPECITABINE. [Suspect]
     Active Substance: CAPECITABINE
     Indication: GALLBLADDER CANCER
     Dosage: UNK
     Route: 065

REACTIONS (2)
  - Enterocolitis [Recovering/Resolving]
  - Intestinal pseudo-obstruction [Recovering/Resolving]
